FAERS Safety Report 16212101 (Version 1)
Quarter: 2019Q2

REPORT INFORMATION
  Report Type: Spontaneous
  Country: US (occurrence: US)
  Receive Date: 20190418
  Receipt Date: 20190418
  Transmission Date: 20190711
  Serious: Yes (Other)
  Sender: FDA-Public Use
  Company Number: US-ABBVIE-19S-163-2747016-00

PATIENT
  Sex: Female

DRUGS (3)
  1. TYLENOL [Suspect]
     Active Substance: ACETAMINOPHEN
     Indication: PAIN
     Route: 065
  2. DEMEROL [Suspect]
     Active Substance: MEPERIDINE HYDROCHLORIDE
     Indication: PAIN
     Route: 065
  3. VICODIN [Suspect]
     Active Substance: ACETAMINOPHEN\HYDROCODONE BITARTRATE
     Indication: PRODUCT USED FOR UNKNOWN INDICATION
     Route: 048

REACTIONS (13)
  - Drug intolerance [Unknown]
  - Cyanosis [Unknown]
  - Analgesic therapy [Unknown]
  - Unevaluable event [Unknown]
  - Anaesthetic complication [Unknown]
  - Foaming at mouth [Unknown]
  - Adverse drug reaction [Unknown]
  - Gait disturbance [Unknown]
  - Nerve compression [Unknown]
  - Shock [Unknown]
  - Pain [Unknown]
  - Surgery [Unknown]
  - Coma [Unknown]
